FAERS Safety Report 10227681 (Version 2)
Quarter: 2014Q2

REPORT INFORMATION
  Report Type: Report from Study
  Country: US (occurrence: US)
  Receive Date: 20140610
  Receipt Date: 20140623
  Transmission Date: 20141212
  Serious: Yes (Hospitalization)
  Sender: FDA-Public Use
  Company Number: US-CELGENEUS-163-21880-14055870

PATIENT
  Age: 4 Year
  Sex: Male
  Weight: 20.3 kg

DRUGS (8)
  1. REVLIMID [Suspect]
     Indication: ASTROCYTOMA
     Route: 048
     Dates: start: 20131120
  2. REVLIMID [Suspect]
     Route: 048
     Dates: start: 20140507, end: 20140521
  3. REVLIMID [Suspect]
     Route: 048
     Dates: start: 20140522
  4. AMITRIPTYLINE [Concomitant]
     Indication: PRODUCT USED FOR UNKNOWN INDICATION
     Route: 065
  5. CLOBAZAM [Concomitant]
     Indication: PRODUCT USED FOR UNKNOWN INDICATION
     Route: 065
  6. LEVETIRACETAM [Concomitant]
     Indication: PRODUCT USED FOR UNKNOWN INDICATION
     Route: 065
  7. MELATONIN [Concomitant]
     Indication: PRODUCT USED FOR UNKNOWN INDICATION
     Route: 065
  8. COTRIMOXAZOL [Concomitant]
     Indication: PRODUCT USED FOR UNKNOWN INDICATION
     Route: 065

REACTIONS (1)
  - Convulsion [Recovered/Resolved]
